FAERS Safety Report 9782069 (Version 1)
Quarter: 2013Q4

REPORT INFORMATION
  Report Type: Report from Study
  Country: BR (occurrence: BR)
  Receive Date: 20131226
  Receipt Date: 20131226
  Transmission Date: 20140711
  Serious: Yes (Disabling, Other)
  Sender: FDA-Public Use
  Company Number: BR-ROCHE-1319955

PATIENT
  Sex: Female
  Weight: 78 kg

DRUGS (4)
  1. INTERFERON ALFA-2A [Suspect]
     Indication: HEPATITIS C
     Route: 065
     Dates: start: 20110725, end: 201111
  2. PARACETAMOL [Suspect]
     Indication: PRODUCT USED FOR UNKNOWN INDICATION
     Route: 065
  3. NOVALGINA [Suspect]
     Indication: PRODUCT USED FOR UNKNOWN INDICATION
     Route: 065
  4. BUSCOPAN [Suspect]
     Indication: PRODUCT USED FOR UNKNOWN INDICATION
     Route: 065

REACTIONS (16)
  - Muscular weakness [Unknown]
  - Anxiety [Unknown]
  - Psychotic disorder [Unknown]
  - Mental disorder [Unknown]
  - Panic disorder [Unknown]
  - Agitation [Unknown]
  - Drug ineffective [Unknown]
  - Depression [Unknown]
  - Headache [Unknown]
  - Tremor [Unknown]
  - Palpitations [Unknown]
  - Dyspnoea [Unknown]
  - Burning sensation [Unknown]
  - Hypersensitivity [Unknown]
  - Memory impairment [Unknown]
  - Cough [Unknown]
